FAERS Safety Report 7988722-7 (Version None)
Quarter: 2011Q4

REPORT INFORMATION
  Report Type: 
  Country: None (occurrence: None)
  Receive Date: 20111219
  Receipt Date: 20111209
  Transmission Date: 20120403
  Serious: Yes (Other)
  Sender: FDA-Public Use
  Company Number: DE-BRISTOL-MYERS SQUIBB COMPANY-16207748

PATIENT
  Age: 48 Year
  Sex: Male

DRUGS (1)
  1. IRBESARTAN [Suspect]
     Dosage: EVERY MORNING,LAST DOSE ON 26SEP11,COAPROVEL STARTED ON UNKNOWN DATE
     Route: 048
     Dates: start: 20110911, end: 20110926

REACTIONS (4)
  - HYPERTENSION [None]
  - OESOPHAGEAL PAIN [None]
  - INTRAOCULAR PRESSURE INCREASED [None]
  - EPISTAXIS [None]
